FAERS Safety Report 20049540 (Version 1)
Quarter: 2021Q4

REPORT INFORMATION
  Report Type: Report from Study
  Country: BR (occurrence: BR)
  Receive Date: 20211109
  Receipt Date: 20211109
  Transmission Date: 20220304
  Serious: Yes (Hospitalization)
  Sender: FDA-Public Use
  Company Number: BR-ABBVIE-21K-020-4150888-00

PATIENT
  Age: 47 Year
  Sex: Female
  Weight: 86 kg

DRUGS (1)
  1. RINVOQ [Suspect]
     Active Substance: UPADACITINIB
     Indication: Rheumatoid arthritis
     Route: 048

REACTIONS (2)
  - COVID-19 [Recovering/Resolving]
  - Poor quality sleep [Recovering/Resolving]

NARRATIVE: CASE EVENT DATE: 20211005
